FAERS Safety Report 8502828-5 (Version None)
Quarter: 2012Q3

REPORT INFORMATION
  Report Type: 
  Country: None (occurrence: None)
  Receive Date: 20120711
  Receipt Date: 20120709
  Transmission Date: 20120928
  Serious: Yes (Disabling, Other)
  Sender: FDA-Public Use
  Company Number: US-PFIZER INC-2012164493

PATIENT
  Sex: Female
  Weight: 131 kg

DRUGS (6)
  1. PRISTIQ [Suspect]
     Indication: POST-TRAUMATIC STRESS DISORDER
     Dosage: UNK, 1X/DAY
     Route: 048
     Dates: end: 20120601
  2. WELLBUTRIN [Concomitant]
     Dosage: UNK
  3. PRISTIQ [Suspect]
     Indication: DEPRESSION
  4. LEVOTHYROXINE SODIUM [Suspect]
     Dosage: UNK
     Dates: end: 20120101
  5. SIMVASTATIN [Concomitant]
     Dosage: UNK
  6. ESTRADIOL [Concomitant]
     Dosage: UNK

REACTIONS (5)
  - DEPRESSION [None]
  - DRUG INEFFECTIVE [None]
  - VITAMIN B12 DEFICIENCY [None]
  - POST-TRAUMATIC STRESS DISORDER [None]
  - HYPOTHYROIDISM [None]
